FAERS Safety Report 9915871 (Version 1)
Quarter: 2014Q1

REPORT INFORMATION
  Report Type: Spontaneous
  Country: US (occurrence: None)
  Receive Date: 20140219
  Receipt Date: 20140219
  Transmission Date: 20141002
  Serious: Yes (Life-Threatening, Hospitalization)
  Sender: FDA-Public Use
  Company Number: None

PATIENT
  Sex: 0

DRUGS (2)
  1. ANDROGEL [Suspect]
     Indication: BLOOD TESTOSTERONE DECREASED
  2. TESTOSTERONE CYPIONATE [Suspect]
     Dosage: INJECTION

REACTIONS (3)
  - Myocardial infarction [None]
  - Coronary artery occlusion [None]
  - Haemorrhage [None]
